FAERS Safety Report 7591853 (Version 2)
Quarter: 2012Q4

REPORT INFORMATION
  Report Type: 
  Country: US (occurrence: US)
  Receive Date: 20100917
  Receipt Date: 20121129
  Transmission Date: 20130627
  Serious: No
  Sender: FDA-Public Use
  Company Number: US-ASTRAZENECA-2010SE23884

PATIENT
  Age: 48 Year
  Sex: Female
  Weight: 108.9 kg

DRUGS (18)
  1. SEROQUEL [Suspect]
     Indication: BIPOLAR I DISORDER
     Dosage: TABLET AND TABLET SR TAKEN INTERCHANGABLY
     Route: 048
     Dates: start: 2007, end: 201005
  2. SEROQUEL [Suspect]
     Indication: SLEEP DISORDER
     Dosage: TABLET AND TABLET SR TAKEN INTERCHANGABLY
     Route: 048
     Dates: start: 2007, end: 201005
  3. SEROQUEL [Suspect]
     Indication: BIPOLAR I DISORDER
     Dosage: TABLET AND TABLET SR TAKEN INTERCHANGABLY
     Route: 048
     Dates: start: 201005
  4. SEROQUEL [Suspect]
     Indication: SLEEP DISORDER
     Dosage: TABLET AND TABLET SR TAKEN INTERCHANGABLY
     Route: 048
     Dates: start: 201005
  5. SEROQUEL [Suspect]
     Indication: BIPOLAR I DISORDER
     Route: 048
  6. SEROQUEL [Suspect]
     Indication: SLEEP DISORDER
     Route: 048
  7. SEROQUEL [Suspect]
     Indication: BIPOLAR I DISORDER
     Route: 048
  8. SEROQUEL [Suspect]
     Indication: SLEEP DISORDER
     Route: 048
  9. LEVOTHYROXINE [Concomitant]
     Indication: THYROID DISORDER
     Route: 048
  10. JANUVIA [Concomitant]
  11. SIMVASTATIN [Concomitant]
  12. TRICOR [Concomitant]
  13. CYMBALTA [Concomitant]
  14. CARBAMAZEPINE [Concomitant]
     Dosage: AT NIGHT
  15. OVER THE COUNTER MEDICATION [Concomitant]
     Indication: SLEEP DISORDER
  16. LORAZEPAM [Concomitant]
  17. KLONOPIN [Concomitant]
  18. GLIPICIDE [Concomitant]
     Indication: DIABETES MELLITUS

REACTIONS (12)
  - Hyperglycaemia [Unknown]
  - Diabetes mellitus [Unknown]
  - Thyroid disorder [Unknown]
  - Diarrhoea [Unknown]
  - Insomnia [Unknown]
  - Bipolar disorder [Unknown]
  - Tachyphrenia [Unknown]
  - Sleep disorder due to general medical condition, insomnia type [Unknown]
  - Drug ineffective [Unknown]
  - Intentional drug misuse [Unknown]
  - Therapeutic response unexpected [Unknown]
  - Off label use [Unknown]
